FAERS Safety Report 5765572-3 (Version None)
Quarter: 2008Q2

REPORT INFORMATION
  Report Type: 
  Country: None (occurrence: None)
  Receive Date: 20080611
  Receipt Date: 20080603
  Transmission Date: 20081010
  Serious: Yes (Hospitalization)
  Sender: FDA-Public Use
  Company Number: FR-ASTRAZENECA-2008CG00761

PATIENT
  Age: 63 Year
  Sex: Male

DRUGS (8)
  1. NEXIUM [Suspect]
     Route: 048
     Dates: start: 20080304, end: 20080306
  2. ROCEPHIN [Suspect]
     Dates: start: 20080304, end: 20080307
  3. PERINDOPRIL ERBUMINE [Concomitant]
  4. TEMERIT [Concomitant]
  5. SPIRONOLACTONE [Concomitant]
  6. ELISOR [Concomitant]
  7. RIVOTRIL [Concomitant]
  8. SMECTA [Concomitant]

REACTIONS (2)
  - NEUTROPENIA [None]
  - THROMBOCYTOPENIA [None]
